FAERS Safety Report 6822477-4 (Version None)
Quarter: 2010Q3

REPORT INFORMATION
  Report Type: 
  Country: None (occurrence: None)
  Receive Date: 20100706
  Receipt Date: 20100706
  Transmission Date: 20110219
  Serious: Yes (Other)
  Sender: FDA-Public Use
  Company Number: None

PATIENT
  Sex: Female

DRUGS (1)
  1. CIMZIA [Suspect]
     Indication: CROHN'S DISEASE
     Dosage: 400 MG AT WEEK 0- SQ, 1 DOSE ONLY
     Route: 058
     Dates: start: 20100629, end: 20100629

REACTIONS (7)
  - ABDOMINAL DISCOMFORT [None]
  - DRUG HYPERSENSITIVITY [None]
  - ERYTHEMA [None]
  - FLUSHING [None]
  - LOCAL SWELLING [None]
  - PRURITUS [None]
  - URTICARIA [None]
